FAERS Safety Report 5257174-2 (Version None)
Quarter: 2007Q1

REPORT INFORMATION
  Report Type: 
  Country: None (occurrence: None)
  Receive Date: 20070307
  Receipt Date: 20070220
  Transmission Date: 20070707
  Serious: Yes (Hospitalization)
  Sender: FDA-Public Use
  Company Number: US-AMGEN-US212021

PATIENT

DRUGS (1)
  1. NEUPOGEN [Suspect]
     Dates: start: 20070219, end: 20070219

REACTIONS (2)
  - MEDICATION ERROR [None]
  - WHITE BLOOD CELL COUNT INCREASED [None]
